FAERS Safety Report 19399811 (Version 1)
Quarter: 2021Q2

REPORT INFORMATION
  Report Type: Spontaneous
  Country: CN (occurrence: CN)
  Receive Date: 20210610
  Receipt Date: 20210610
  Transmission Date: 20210717
  Serious: Yes (Hospitalization, Other)
  Sender: FDA-Public Use
  Company Number: CN-BRACCO-2021CN02352

PATIENT
  Age: 29 Year
  Sex: Female

DRUGS (4)
  1. ORNIDAZOLE [Concomitant]
     Active Substance: ORNIDAZOLE
     Indication: ANTIBIOTIC PROPHYLAXIS
     Dosage: UNK
     Dates: start: 20210520
  2. GADOBENATE DIMEGLUMINE [Suspect]
     Active Substance: GADOBENATE DIMEGLUMINE
     Indication: MAGNETIC RESONANCE IMAGING
     Dosage: 7.935 G
     Route: 042
     Dates: start: 20210523, end: 20210523
  3. TRANEXAMIC ACID. [Concomitant]
     Active Substance: TRANEXAMIC ACID
     Indication: HAEMOSTASIS
     Dosage: UNK
     Dates: start: 20210520
  4. CEFTIZOXIME SODIUM [Concomitant]
     Active Substance: CEFTIZOXIME SODIUM
     Indication: ANTIBIOTIC PROPHYLAXIS
     Dosage: UNK
     Dates: start: 20210520

REACTIONS (2)
  - Chills [Recovering/Resolving]
  - White blood cell count decreased [Recovering/Resolving]

NARRATIVE: CASE EVENT DATE: 20210523
